FAERS Safety Report 13474205 (Version 3)
Quarter: 2017Q2

REPORT INFORMATION
  Report Type: Spontaneous
  Country: BR (occurrence: BR)
  Receive Date: 20170424
  Receipt Date: 20170530
  Transmission Date: 20170830
  Serious: Yes (Other)
  Sender: FDA-Public Use
  Company Number: BR-JNJFOC-20170413291

PATIENT
  Age: 87 Year
  Sex: Female

DRUGS (1)
  1. TYLEX [Suspect]
     Active Substance: ACETAMINOPHEN\CODEINE PHOSPHATE
     Indication: PAIN
     Route: 048
     Dates: start: 20170411

REACTIONS (3)
  - Product size issue [Unknown]
  - Choking [Unknown]
  - Asphyxia [Unknown]

NARRATIVE: CASE EVENT DATE: 20170411
